FAERS Safety Report 4752412-4 (Version None)
Quarter: 2005Q3

REPORT INFORMATION
  Report Type: 
  Country: None (occurrence: None)
  Receive Date: 20050823
  Receipt Date: 20050810
  Transmission Date: 20060218
  Serious: Yes (Other)
  Sender: FDA-Public Use
  Company Number: GBS050818148

PATIENT
  Age: 65 Year
  Sex: Female

DRUGS (1)
  1. XIGRIS [Suspect]
     Dosage: 24 UG/KG/HR

REACTIONS (2)
  - BLOOD PRESSURE SYSTOLIC INCREASED [None]
  - INTERNATIONAL NORMALISED RATIO INCREASED [None]
